FAERS Safety Report 24126282 (Version 1)
Quarter: 2024Q3

REPORT INFORMATION
  Report Type: Spontaneous
  Country: US (occurrence: US)
  Receive Date: 20240723
  Receipt Date: 20240723
  Transmission Date: 20241017
  Serious: No
  Sender: BRISTOL MYERS SQUIBB
  Company Number: US-BRISTOL-MYERS SQUIBB COMPANY-2024-113937

PATIENT
  Age: 78 Year
  Sex: Female

DRUGS (1)
  1. IDHIFA [Suspect]
     Active Substance: ENASIDENIB MESYLATE
     Indication: Cholangiocarcinoma
     Route: 048
     Dates: start: 20210123

REACTIONS (3)
  - Illness [Unknown]
  - Off label use [Unknown]
  - Intentional dose omission [Unknown]
